FAERS Safety Report 6015110-5 (Version None)
Quarter: 2008Q4

REPORT INFORMATION
  Report Type: 
  Country: None (occurrence: None)
  Receive Date: 20081222
  Receipt Date: 20081211
  Transmission Date: 20090506
  Serious: Yes (Hospitalization)
  Sender: FDA-Public Use
  Company Number: JP-BRISTOL-MYERS SQUIBB COMPANY-14448245

PATIENT
  Age: 53 Year
  Sex: Female

DRUGS (6)
  1. ABILIFY [Suspect]
     Indication: SCHIZOPHRENIA, PARANOID TYPE
     Route: 048
     Dates: start: 20080801, end: 20081127
  2. BIOFERMIN [Concomitant]
     Dates: end: 20081128
  3. SLOW-K [Concomitant]
     Dates: end: 20081128
  4. AMLODIN [Concomitant]
  5. PURSENNID [Concomitant]
     Dates: end: 20081128
  6. NORVASC [Concomitant]

REACTIONS (1)
  - INAPPROPRIATE ANTIDIURETIC HORMONE SECRETION [None]
